FAERS Safety Report 25405104 (Version 2)
Quarter: 2025Q3

REPORT INFORMATION
  Report Type: Spontaneous
  Country: US (occurrence: US)
  Receive Date: 20250606
  Receipt Date: 20250816
  Transmission Date: 20251021
  Serious: No
  Sender: ALEXION PHARMACEUTICALS
  Company Number: US-AstraZeneca-CH-00878414AP

PATIENT
  Age: 63 Year
  Sex: Male

DRUGS (1)
  1. BREZTRI [Suspect]
     Active Substance: BUDESONIDE\FORMOTEROL\GLYCOPYRROLATE
     Dosage: 160 MICROGRAM, BID
     Route: 065

REACTIONS (7)
  - Dyspnoea [Unknown]
  - Incorrect dose administered by device [Unknown]
  - Drug dose omission by device [Unknown]
  - Vision blurred [Unknown]
  - Device use issue [Unknown]
  - Asthma [Unknown]
  - Device malfunction [Unknown]

NARRATIVE: CASE EVENT DATE: 20250301
